FAERS Safety Report 6817115-0 (Version None)
Quarter: 2010Q3

REPORT INFORMATION
  Report Type: 
  Country: None (occurrence: None)
  Receive Date: 20100706
  Receipt Date: 20100622
  Transmission Date: 20110219
  Serious: Yes (Life-Threatening, Hospitalization)
  Sender: FDA-Public Use
  Company Number: PHHY2010GB00850

PATIENT
  Sex: Male

DRUGS (7)
  1. CLOZARIL [Suspect]
     Indication: BIPOLAR DISORDER
     Dosage: 250MG
     Route: 048
     Dates: start: 20080909, end: 20100103
  2. CLOZARIL [Suspect]
     Dosage: UNK
     Dates: start: 20100107
  3. STALEVO 100 [Concomitant]
     Indication: PARKINSON'S DISEASE
     Dosage: 1 TABLET QDS
     Route: 048
  4. GLICLAZIDE [Concomitant]
     Indication: DIABETES MELLITUS
     Dosage: 80MG
     Route: 048
  5. LACTULOSE [Concomitant]
     Indication: CONSTIPATION
     Dosage: 40 ML
     Route: 048
  6. SENNA [Concomitant]
     Indication: CONSTIPATION
     Dosage: 2 TABLETS
     Route: 048
  7. KWELLS [Concomitant]
     Indication: SALIVARY HYPERSECRETION
     Dosage: 2 TABLETS
     Route: 048

REACTIONS (7)
  - ABDOMINAL SYMPTOM [None]
  - CONSTIPATION [None]
  - FAECALOMA [None]
  - GASTROINTESTINAL SURGERY [None]
  - INTESTINAL FUNCTIONAL DISORDER [None]
  - LAPAROTOMY [None]
  - OBSTRUCTION [None]
